FAERS Safety Report 8681948 (Version 2)
Quarter: 2013Q2

REPORT INFORMATION
  Report Type: Report from Study
  Country: US (occurrence: US)
  Receive Date: 20120725
  Receipt Date: 20130605
  Transmission Date: 20140414
  Serious: Yes (Hospitalization)
  Sender: FDA-Public Use
  Company Number: PHHO2012US009522

PATIENT
  Age: 70 Year
  Sex: Female
  Weight: 90.3 kg

DRUGS (11)
  1. SOM230 [Suspect]
     Indication: THYROID CANCER
     Dosage: UNK
     Route: 058
     Dates: start: 20101208, end: 20120606
  2. AFINITOR [Suspect]
     Indication: THYROID CANCER
     Dosage: 10 MG, QD
     Route: 048
     Dates: start: 20120411, end: 20120606
  3. VERAPAMIL [Concomitant]
  4. DIOVAN [Concomitant]
  5. POTASSIUM CHLORIDE [Concomitant]
  6. METFORMIN [Concomitant]
  7. LEVOXYL [Concomitant]
  8. HYDRALAZINE [Concomitant]
  9. LASIX [Concomitant]
  10. ADVAIR DISKUS [Concomitant]
  11. ATROVENT [Concomitant]

REACTIONS (3)
  - Dyspnoea [Unknown]
  - Anaemia [Unknown]
  - Diabetic ketoacidosis [Unknown]
